FAERS Safety Report 5763475-1 (Version None)
Quarter: 2008Q2

REPORT INFORMATION
  Report Type: 
  Country: None (occurrence: None)
  Receive Date: 20080529
  Receipt Date: 20080225
  Transmission Date: 20081010
  Serious: Yes (Other)
  Sender: FDA-Public Use
  Company Number: CIP08000289

PATIENT
  Age: 59 Year
  Sex: Female

DRUGS (6)
  1. ACTONEL [Suspect]
     Indication: OSTEOPOROSIS
     Dosage: ORAL; 70 MG ONCE WEEKLY, ORAL
     Route: 048
     Dates: start: 20000101, end: 20051201
  2. ACTONEL [Suspect]
     Indication: OSTEOPOROSIS
     Dosage: ORAL; 70 MG ONCE WEEKLY, ORAL
     Route: 048
     Dates: start: 20051201, end: 20060701
  3. FOSAMAX [Suspect]
     Indication: OSTEOPOROSIS
     Dosage: 10 MG DAILY, ORAL
     Route: 048
     Dates: start: 19990101
  4. ZETIA [Concomitant]
  5. MYSOLINE [Concomitant]
  6. ASPIRIN [Concomitant]

REACTIONS (4)
  - JAW DISORDER [None]
  - OSTEONECROSIS [None]
  - PAIN IN JAW [None]
  - SWELLING [None]
